FAERS Safety Report 8457258-1 (Version None)
Quarter: 2012Q2

REPORT INFORMATION
  Report Type: 
  Country: None (occurrence: None)
  Receive Date: 20120621
  Receipt Date: 20120619
  Transmission Date: 20120825
  Serious: Yes (Life-Threatening)
  Sender: FDA-Public Use
  Company Number: FR-ROCHE-1036956

PATIENT
  Sex: Male
  Weight: 70 kg

DRUGS (7)
  1. ACETAMINOPHEN [Suspect]
     Indication: PAIN
     Dates: start: 20111201
  2. OMEPRAZOLE [Concomitant]
     Indication: DUODENAL ULCER
     Dates: start: 19960101
  3. VISMODEGIB [Suspect]
     Indication: BASAL CELL CARCINOMA
     Dosage: LAST DOSE PRIOR TO THE SAE ON 15/JAN/2012
     Route: 048
     Dates: start: 20111207, end: 20120115
  4. ACARBOSE [Concomitant]
     Indication: DIABETES MELLITUS
     Dates: start: 19800101
  5. ACETAMINOPHEN [Suspect]
     Dates: start: 20120101
  6. AMARYL [Concomitant]
     Indication: DIABETES MELLITUS
     Dates: start: 19800101
  7. ZOCOR [Concomitant]
     Indication: DYSLIPIDAEMIA
     Dates: start: 20020101

REACTIONS (1)
  - HEPATITIS [None]
